FAERS Safety Report 21799487 (Version 1)
Quarter: 2022Q4

REPORT INFORMATION
  Report Type: Other
  Country: GB (occurrence: GB)
  Receive Date: 20221230
  Receipt Date: 20221230
  Transmission Date: 20230113
  Serious: Yes (Other)
  Sender: FDA-Public Use
  Company Number: GB-MACLEODS PHARMACEUTICALS US LTD-MAC2022038985

PATIENT

DRUGS (21)
  1. SILDENAFIL [Suspect]
     Active Substance: SILDENAFIL
     Indication: Product used for unknown indication
     Dosage: 100 MILLIGRAM, PRN (AS DIRECTED)
     Route: 065
     Dates: start: 20220816
  2. Belcometasone [Concomitant]
     Indication: Product used for unknown indication
     Dosage: 2 DOSAGE FORM, BID; INTO EACH NOSTRIL
     Route: 045
     Dates: start: 20220816
  3. BENZOYL PEROXIDE [Concomitant]
     Active Substance: BENZOYL PEROXIDE
     Indication: Product used for unknown indication
     Dosage: UNK; APPLY AS DIRECTED
     Route: 065
     Dates: start: 20220816
  4. BISOPROLOL [Concomitant]
     Active Substance: BISOPROLOL
     Indication: Product used for unknown indication
     Dosage: 1 DOSAGE FORM, QD
     Route: 065
     Dates: start: 20220816
  5. CAPSAICIN [Concomitant]
     Active Substance: CAPSAICIN
     Indication: Product used for unknown indication
     Dosage: 1 DOSAGE FORM, TID
     Route: 065
     Dates: start: 20220816
  6. COCODAMOL [Concomitant]
     Active Substance: ACETAMINOPHEN\CODEINE PHOSPHATE
     Indication: Product used for unknown indication
     Dosage: 2 DOSAGE FORM, QID
     Route: 065
     Dates: start: 20221128, end: 20221205
  7. CO-MAGALDROX [Concomitant]
     Indication: Product used for unknown indication
     Dosage: 10 MILLILITER, PRN
     Route: 048
     Dates: start: 20220816
  8. Dalacin [Concomitant]
     Indication: Product used for unknown indication
     Dosage: 1 DOSAGE FORM, BID
     Route: 065
     Dates: start: 20220816
  9. DESMOPRESSIN [Concomitant]
     Active Substance: DESMOPRESSIN
     Indication: Product used for unknown indication
     Dosage: UNK; UPTO 4 X DAILY
     Route: 065
     Dates: start: 20220816
  10. EMLA [Concomitant]
     Active Substance: LIDOCAINE\PRILOCAINE
     Indication: Product used for unknown indication
     Dosage: UNK; APPLY AS DIRECTED
     Route: 065
     Dates: start: 20221206
  11. FINASTERIDE [Concomitant]
     Active Substance: FINASTERIDE
     Indication: Product used for unknown indication
     Dosage: 1 DOSAGE FORM, QD
     Route: 065
     Dates: start: 20220816
  12. FLUCLOXACILLIN [Concomitant]
     Active Substance: FLUCLOXACILLIN
     Indication: Product used for unknown indication
     Dosage: 1 DOSAGE FORM, QID
     Route: 065
     Dates: start: 20221128, end: 20221205
  13. BUTYLSCOPOLAMINE BROMIDE [Concomitant]
     Active Substance: BUTYLSCOPOLAMINE BROMIDE
     Indication: Product used for unknown indication
     Dosage: 1 DOSAGE FORM, QID, AS REQUIRED
     Route: 065
     Dates: start: 20220816
  14. ISPAGHULA EXTRACT\PSYLLIUM [Concomitant]
     Active Substance: HERBALS\PLANTAGO OVATA SEED\PLANTAGO SEED
     Indication: Product used for unknown indication
     Dosage: UNK; USE AS DIRECTED
     Route: 065
     Dates: start: 20221128, end: 20221205
  15. LANSOPRAZOLE [Concomitant]
     Active Substance: LANSOPRAZOLE
     Indication: Product used for unknown indication
     Dosage: 1 DOSAGE FORM, Q.H.
     Route: 065
     Dates: start: 20220816
  16. LOPERAMIDE [Concomitant]
     Active Substance: LOPERAMIDE
     Indication: Product used for unknown indication
     Dosage: UNK; TAKE AS DIRECTED
     Route: 065
     Dates: start: 20220816
  17. LORATADINE [Concomitant]
     Active Substance: LORATADINE
     Indication: Product used for unknown indication
     Dosage: 1 DOSAGE FORM, QD
     Route: 065
     Dates: start: 20220816
  18. OTOMIZE [Concomitant]
     Indication: Product used for unknown indication
     Dosage: UNK; USE 2-3 TIMES A DAY
     Route: 065
     Dates: start: 20221103, end: 20221117
  19. PROCHLORPERAZINE [Concomitant]
     Active Substance: PROCHLORPERAZINE
     Indication: Product used for unknown indication
     Dosage: 1 DOSAGE FORM, TID, AS REQUIRED
     Route: 065
     Dates: start: 20220816
  20. UREA [Concomitant]
     Active Substance: UREA
     Indication: Pruritus
     Dosage: 1 DOSAGE FORM, BID (IF REQUIRED)
     Route: 065
     Dates: start: 20221207
  21. Xyloproct [Concomitant]
     Indication: Product used for unknown indication
     Dosage: 1 DOSAGE FORM, PRN; APPLY AS NEEDED
     Route: 065
     Dates: start: 20221207

REACTIONS (2)
  - Anal ulcer [Recovered/Resolved]
  - Skin ulcer [Recovered/Resolved]
